FAERS Safety Report 25383914 (Version 1)
Quarter: 2025Q2

REPORT INFORMATION
  Report Type: Spontaneous
  Country: US (occurrence: US)
  Receive Date: 20250602
  Receipt Date: 20250602
  Transmission Date: 20250716
  Serious: No
  Sender: Kenvue
  Company Number: US-KENVUE-20250507817

PATIENT
  Age: 50 Year
  Sex: Male

DRUGS (1)
  1. MENS ROGAINE EXTRA STRENGTH [Suspect]
     Active Substance: MINOXIDIL
     Indication: Product used for unknown indication
     Dosage: A HAND FULL IN THE PALM OF THE HAND 1 TIME PER DAY IN EVENING
     Route: 061
     Dates: start: 20241001

REACTIONS (3)
  - Inappropriate schedule of product administration [Unknown]
  - Headache [Recovered/Resolved]
  - Overdose [Unknown]

NARRATIVE: CASE EVENT DATE: 20241001
